FAERS Safety Report 9030901 (Version 2)
Quarter: 2013Q4

REPORT INFORMATION
  Report Type: Report from Study
  Country: US (occurrence: US)
  Receive Date: 20130123
  Receipt Date: 20131218
  Transmission Date: 20140711
  Serious: Yes (Death)
  Sender: FDA-Public Use
  Company Number: US-ROCHE-1182412

PATIENT
  Age: 57 Year
  Sex: Male

DRUGS (7)
  1. AVASTIN [Suspect]
     Indication: COLON CANCER
     Route: 042
     Dates: start: 20081222
  2. XELODA [Suspect]
     Indication: PRODUCT USED FOR UNKNOWN INDICATION
     Route: 065
  3. ERLOTINIB [Suspect]
     Indication: PRODUCT USED FOR UNKNOWN INDICATION
     Route: 065
  4. CAMPTOSAR [Concomitant]
     Route: 042
  5. ALOXI [Concomitant]
     Route: 042
  6. DECADRON [Concomitant]
     Route: 042
  7. ATROPINE [Concomitant]
     Route: 058

REACTIONS (3)
  - Death [Fatal]
  - Diarrhoea [Unknown]
  - Metastases to liver [Unknown]
